FAERS Safety Report 7563514-1 (Version None)
Quarter: 2011Q2

REPORT INFORMATION
  Report Type: 
  Country: None (occurrence: None)
  Receive Date: 20110622
  Receipt Date: 20110608
  Transmission Date: 20111010
  Serious: Yes (Hospitalization, Other)
  Sender: FDA-Public Use
  Company Number: IT-PFIZER INC-2011134997

PATIENT

DRUGS (1)
  1. SUTENT [Suspect]
     Indication: RENAL CANCER
     Dosage: 37.5 MG, 1X/DAY
     Route: 048
     Dates: start: 20090605, end: 20090630

REACTIONS (6)
  - DIARRHOEA [None]
  - BLOOD UREA INCREASED [None]
  - VOMITING [None]
  - BLOOD CREATININE INCREASED [None]
  - NAUSEA [None]
  - MUCOSAL INFLAMMATION [None]
